APPROVED DRUG PRODUCT: ACETYLCYSTEINE
Active Ingredient: ACETYLCYSTEINE
Strength: 10%
Dosage Form/Route: SOLUTION;INHALATION, ORAL
Application: A073664 | Product #001 | TE Code: AN
Applicant: HOSPIRA INC
Approved: Aug 30, 1994 | RLD: No | RS: No | Type: RX